FAERS Safety Report 18555526 (Version 1)
Quarter: 2020Q4

REPORT INFORMATION
  Report Type: Spontaneous
  Country: US (occurrence: US)
  Receive Date: 20201127
  Receipt Date: 20201127
  Transmission Date: 20210114
  Serious: Yes (Other)
  Sender: FDA-Public Use
  Company Number: US-009507513-2011USA014194

PATIENT
  Age: 65 Year
  Sex: Male
  Weight: 109 kg

DRUGS (4)
  1. FELODIPINE. [Suspect]
     Active Substance: FELODIPINE
  2. PRINIVIL [Suspect]
     Active Substance: LISINOPRIL
  3. KOMBIGLYZE XR [Suspect]
     Active Substance: METFORMIN HYDROCHLORIDE\SAXAGLIPTIN HYDROCHLORIDE
     Dates: end: 201105
  4. ATENOLOL. [Suspect]
     Active Substance: ATENOLOL

REACTIONS (2)
  - Urticaria [Recovering/Resolving]
  - Face oedema [Recovering/Resolving]

NARRATIVE: CASE EVENT DATE: 201105
